FAERS Safety Report 9694077 (Version 1)
Quarter: 2013Q4

REPORT INFORMATION
  Report Type: Spontaneous
  Country: FR (occurrence: FR)
  Receive Date: 20131118
  Receipt Date: 20131118
  Transmission Date: 20140711
  Serious: Yes (Hospitalization)
  Sender: FDA-Public Use
  Company Number: FR-ABBVIE-13P-056-1169771-00

PATIENT
  Age: 84 Year
  Sex: Male

DRUGS (6)
  1. TARKA [Suspect]
     Indication: HYPERTENSION
     Route: 048
  2. SUTENT [Suspect]
     Indication: RENAL CANCER
     Route: 048
     Dates: start: 20130301, end: 20130325
  3. SUTENT [Suspect]
     Indication: METASTASES TO LIVER
  4. SIMVASTATINE [Suspect]
     Indication: PRODUCT USED FOR UNKNOWN INDICATION
     Route: 048
  5. PARACETAMOL [Suspect]
     Indication: PRODUCT USED FOR UNKNOWN INDICATION
     Route: 048
  6. ALLOPURINOL [Concomitant]
     Indication: PRODUCT USED FOR UNKNOWN INDICATION

REACTIONS (2)
  - Thrombocytopenia [Recovered/Resolved]
  - Transaminases increased [Recovered/Resolved]
